FAERS Safety Report 7109909-1 (Version None)
Quarter: 2010Q4

REPORT INFORMATION
  Report Type: 
  Country: None (occurrence: None)
  Receive Date: 20101116
  Receipt Date: 20101116
  Transmission Date: 20110411
  Serious: Yes (Life-Threatening)
  Sender: FDA-Public Use
  Company Number: None

PATIENT
  Age: 73 Year
  Sex: Female
  Weight: 91.173 kg

DRUGS (1)
  1. LEUKINE [Suspect]
     Indication: NEUTROPENIA
     Dosage: 500 DAILY SQ
     Route: 058
     Dates: start: 20101010, end: 20101110

REACTIONS (2)
  - DIZZINESS [None]
  - DYSPNOEA [None]
